FAERS Safety Report 8336148 (Version 3)
Quarter: 2012Q4

REPORT INFORMATION
  Report Type: Report from Study
  Country: DE (occurrence: DE)
  Receive Date: 20120113
  Receipt Date: 20120901
  Transmission Date: 20130627
  Serious: Yes (Death, Hospitalization)
  Sender: FDA-Public Use
  Company Number: DE-ROCHE-1029184

PATIENT
  Age: 74 Year
  Sex: Female
  Weight: 42 kg

DRUGS (12)
  1. AVASTIN [Suspect]
     Indication: NON-SMALL CELL LUNG CANCER
     Dosage: last dose prior to SAE  10/nov/2011
     Route: 042
     Dates: start: 20111020
  2. PEMETREXED DISODIUM [Suspect]
     Indication: NON-SMALL CELL LUNG CANCER
     Dosage: last dose prior tto SAE  10/nov/2011
     Route: 042
     Dates: start: 20111020
  3. MELPERON [Concomitant]
     Dates: start: 20111013, end: 20111225
  4. LEVOTHYROXIN [Concomitant]
     Dates: end: 20111225
  5. METAMIZOL [Concomitant]
     Dates: end: 20111225
  6. OXYCODONE [Concomitant]
     Dates: start: 20111013, end: 20111225
  7. PANTOZOL [Concomitant]
     Dates: end: 20111225
  8. DEXAMETHASON [Concomitant]
     Dates: end: 20111225
  9. FRESUBIN [Concomitant]
     Dates: end: 20111225
  10. LENDORMIN [Concomitant]
     Dates: end: 20111225
  11. ALLOPURINOL [Concomitant]
     Dates: end: 20111225
  12. BISOPROLOL [Concomitant]
     Dates: end: 20111225

REACTIONS (2)
  - Disease progression [Fatal]
  - General physical health deterioration [None]
